FAERS Safety Report 11649772 (Version 1)
Quarter: 2015Q4

REPORT INFORMATION
  Report Type: Spontaneous
  Country: US (occurrence: US)
  Receive Date: 20151021
  Receipt Date: 20151021
  Transmission Date: 20160304
  Serious: Yes (Hospitalization, Other)
  Sender: FDA-Public Use
  Company Number: US-PFIZER INC-2015350644

PATIENT
  Age: 62 Year
  Sex: Female
  Weight: 54 kg

DRUGS (1)
  1. NEURONTIN [Suspect]
     Active Substance: GABAPENTIN
     Dosage: UNK

REACTIONS (8)
  - Fall [Unknown]
  - Drug hypersensitivity [Unknown]
  - Confusional state [Unknown]
  - Chronic obstructive pulmonary disease [Recovered/Resolved]
  - Disturbance in attention [Unknown]
  - Asthenia [Unknown]
  - Malaise [Unknown]
  - Pneumonia [Unknown]
